FAERS Safety Report 8129321-6 (Version None)
Quarter: 2012Q1

REPORT INFORMATION
  Report Type: 
  Country: None (occurrence: None)
  Receive Date: 20120210
  Receipt Date: 20111202
  Transmission Date: 20120608
  Serious: Yes (Other)
  Sender: FDA-Public Use
  Company Number: PHHO2011AU18302

PATIENT
  Sex: Male

DRUGS (4)
  1. MYCOPHENOLATE MOFETIL [Suspect]
     Indication: RENAL TRANSPLANT
     Dosage: 2000 MG, QD
     Dates: start: 20061128
  2. PREDNISONE [Suspect]
     Indication: RENAL TRANSPLANT
     Dosage: 5 MG, QD
     Route: 048
     Dates: start: 20061207
  3. ADALAT [Concomitant]
     Dosage: UNK
     Dates: start: 20081027
  4. CYCLOSPORINE [Suspect]
     Indication: RENAL TRANSPLANT
     Dosage: 125 MG, QD
     Route: 048
     Dates: start: 20061127

REACTIONS (2)
  - SQUAMOUS CELL CARCINOMA [None]
  - BASAL CELL CARCINOMA [None]
